FAERS Safety Report 5285667-0 (Version None)
Quarter: 2007Q1

REPORT INFORMATION
  Report Type: 
  Country: None (occurrence: None)
  Receive Date: 20070126
  Receipt Date: 20061206
  Transmission Date: 20070707
  Serious: No
  Sender: FDA-Public Use
  Company Number: 012731

PATIENT
  Sex: Male

DRUGS (1)
  1. PRIALT [Suspect]
     Indication: PAIN
     Dosage: ONCE/HOUR, INTRATHECAL
     Route: 037

REACTIONS (2)
  - CATHETER RELATED COMPLICATION [None]
  - DRUG INEFFECTIVE [None]
